FAERS Safety Report 18239033 (Version 1)
Quarter: 2020Q3

REPORT INFORMATION
  Report Type: Spontaneous
  Country: US (occurrence: US)
  Receive Date: 20200907
  Receipt Date: 20200907
  Transmission Date: 20201103
  Serious: No
  Sender: FDA-Public Use
  Company Number: US-TEVA-2020-US-1823512

PATIENT
  Age: 61 Year
  Sex: Female

DRUGS (1)
  1. PROAIR HFA [Suspect]
     Active Substance: ALBUTEROL SULFATE
     Dosage: FORM OF ADMIN: INHALER
     Route: 065

REACTIONS (2)
  - Prescription drug used without a prescription [Unknown]
  - Product availability issue [Unknown]
